FAERS Safety Report 25685356 (Version 1)
Quarter: 2025Q3

REPORT INFORMATION
  Report Type: Spontaneous
  Country: EG (occurrence: EG)
  Receive Date: 20250815
  Receipt Date: 20250815
  Transmission Date: 20251021
  Serious: Yes (Hospitalization, Other)
  Sender: HIKMA
  Company Number: EG-HIKMA PHARMACEUTICALS-EG-H14001-25-09428

PATIENT
  Age: 61 Year
  Sex: Female
  Weight: 93 kg

DRUGS (7)
  1. PACLITAXEL [Suspect]
     Active Substance: PACLITAXEL
     Dosage: 142.5 MILLIGRAM, WEEKLY, 30MG/ 5 ML STRENGTH
     Route: 041
     Dates: start: 20250703
  2. PACLITAXEL [Suspect]
     Active Substance: PACLITAXEL
     Dosage: 142.5 MILLIGRAM, WEEKLY, 30MG/ 5 ML STRENGTH
     Route: 041
  3. PACLITAXEL [Suspect]
     Active Substance: PACLITAXEL
     Indication: Breast cancer metastatic
     Dosage: 142.5 MILLIGRAM, WEEKLY, 100MG/16.67 STRENGTH
     Route: 041
  4. PACLITAXEL [Suspect]
     Active Substance: PACLITAXEL
     Dosage: 142.5 MILLIGRAM, WEEKLY, 100MG/16.67 STRENGTH
     Route: 041
     Dates: start: 20250703
  5. ANTODINE [CALCIUM CARBONATE;FAMOTIDINE;MAGNESIUM HYDROXIDE] [Concomitant]
     Indication: Product used for unknown indication
     Route: 065
  6. PHENIRAMINE [Concomitant]
     Active Substance: PHENIRAMINE
     Indication: Product used for unknown indication
     Route: 065
  7. DEXAMETHASONE [Concomitant]
     Active Substance: DEXAMETHASONE
     Indication: Product used for unknown indication
     Route: 065

REACTIONS (5)
  - Leukopenia [Recovering/Resolving]
  - Pyrexia [Recovered/Resolved]
  - Cough [Recovered/Resolved]
  - Thrombocytopenia [Not Recovered/Not Resolved]
  - Hypochromic anaemia [Not Recovered/Not Resolved]

NARRATIVE: CASE EVENT DATE: 20250708
